FAERS Safety Report 15782198 (Version 1)
Quarter: 2019Q1

REPORT INFORMATION
  Report Type: Spontaneous
  Country: US (occurrence: US)
  Receive Date: 20190102
  Receipt Date: 20190102
  Transmission Date: 20190417
  Serious: Yes (Other)
  Sender: FDA-Public Use
  Company Number: US-FRESENIUS KABI-FK201813353

PATIENT
  Age: 25 Month
  Sex: Male

DRUGS (6)
  1. HEPARIN [Concomitant]
     Active Substance: HEPARIN SODIUM
     Indication: PROPHYLAXIS
     Route: 065
  2. HEPARIN [Concomitant]
     Active Substance: HEPARIN SODIUM
     Indication: ANTICOAGULANT THERAPY
  3. NITROUS OXIDE. [Suspect]
     Active Substance: NITROUS OXIDE
     Indication: INDUCTION OF ANAESTHESIA
     Dosage: 31.9 PERCENT ET N2O
     Route: 065
  4. TOPOTECAN [Suspect]
     Active Substance: TOPOTECAN HYDROCHLORIDE
     Indication: RETINOBLASTOMA
     Route: 065
  5. MELPHALAN (MANUFACTURER UNKNOWN) [Suspect]
     Active Substance: MELPHALAN
     Indication: RETINOBLASTOMA
     Route: 065
  6. CARBOPLATIN (MANUFACTURER UNKNOWN) [Suspect]
     Active Substance: CARBOPLATIN
     Indication: RETINOBLASTOMA
     Route: 065

REACTIONS (1)
  - Choroidal infarction [Unknown]
